FAERS Safety Report 22011042 (Version 1)
Quarter: 2023Q1

REPORT INFORMATION
  Report Type: Spontaneous
  Country: CA (occurrence: CA)
  Receive Date: 20230220
  Receipt Date: 20230220
  Transmission Date: 20230418
  Serious: Yes (Other)
  Sender: FDA-Public Use
  Company Number: CA-GLAXOSMITHKLINE-CA2023AMR026408

PATIENT

DRUGS (1)
  1. BENLYSTA [Suspect]
     Active Substance: BELIMUMAB
     Indication: Systemic lupus erythematosus
     Dosage: UNK

REACTIONS (6)
  - Cutaneous lupus erythematosus [Unknown]
  - Sinusitis [Unknown]
  - Pain [Unknown]
  - Mobility decreased [Unknown]
  - Fatigue [Unknown]
  - Alopecia [Unknown]
